FAERS Safety Report 10270382 (Version 1)
Quarter: 2014Q3

REPORT INFORMATION
  Report Type: Spontaneous
  Country: US (occurrence: US)
  Receive Date: 20140701
  Receipt Date: 20140701
  Transmission Date: 20150326
  Serious: Yes (Other)
  Sender: FDA-Public Use
  Company Number: US-BAYER-2014-093969

PATIENT
  Sex: Male

DRUGS (1)
  1. BAYER EXTRA STRENGTH ASPIRIN [Suspect]
     Active Substance: ASPIRIN
     Dosage: UNK UNK, ONCE

REACTIONS (3)
  - Extra dose administered [None]
  - Hypoacusis [Unknown]
  - Tinnitus [Unknown]
